FAERS Safety Report 15608659 (Version 1)
Quarter: 2018Q4

REPORT INFORMATION
  Report Type: Spontaneous
  Country: US (occurrence: US)
  Receive Date: 20181112
  Receipt Date: 20181112
  Transmission Date: 20190205
  Serious: No
  Sender: FDA-Public Use
  Company Number: US-SA-2018SA309585

PATIENT
  Age: 55 Year
  Sex: Female

DRUGS (1)
  1. BISACODYL. [Suspect]
     Active Substance: BISACODYL

REACTIONS (1)
  - Abdominal pain upper [Unknown]
